FAERS Safety Report 11861998 (Version 1)
Quarter: 2015Q4

REPORT INFORMATION
  Report Type: Spontaneous
  Country: US (occurrence: US)
  Receive Date: 20151222
  Receipt Date: 20151222
  Transmission Date: 20160305
  Serious: No
  Sender: FDA-Public Use
  Company Number: US-ROCHE-1064953

PATIENT
  Sex: Male

DRUGS (3)
  1. TELAPREVIR [Suspect]
     Active Substance: TELAPREVIR
     Indication: HEPATITIS C
     Route: 065
     Dates: start: 20120423
  2. PEGASYS [Suspect]
     Active Substance: PEGINTERFERON ALFA-2A
     Indication: HEPATITIS C
     Route: 058
     Dates: start: 20120423
  3. RIBAVIRIN. [Suspect]
     Active Substance: RIBAVIRIN
     Indication: HEPATITIS C
     Route: 048
     Dates: start: 20120423

REACTIONS (8)
  - Vision blurred [Unknown]
  - Tremor [Unknown]
  - Tinnitus [Unknown]
  - Nausea [Unknown]
  - Headache [Unknown]
  - Flushing [Unknown]
  - Dizziness [Unknown]
  - Anorectal discomfort [Unknown]
